FAERS Safety Report 15044035 (Version 2)
Quarter: 2018Q2

REPORT INFORMATION
  Report Type: Spontaneous
  Country: JP (occurrence: JP)
  Receive Date: 20180621
  Receipt Date: 20180626
  Transmission Date: 20180711
  Serious: Yes (Hospitalization, Other)
  Sender: FDA-Public Use
  Company Number: JP-GLAXOSMITHKLINE-JP2018JPN108758

PATIENT
  Age: 75 Year
  Sex: Female

DRUGS (1)
  1. VALTREX [Suspect]
     Active Substance: VALACYCLOVIR HYDROCHLORIDE
     Dosage: 500 MG, QD
     Route: 048

REACTIONS (2)
  - Fall [Unknown]
  - Femur fracture [Unknown]
